FAERS Safety Report 22030281 (Version 2)
Quarter: 2023Q1

REPORT INFORMATION
  Report Type: Spontaneous
  Country: US (occurrence: US)
  Receive Date: 20230223
  Receipt Date: 20230309
  Transmission Date: 20230418
  Serious: Yes (Death, Hospitalization, Other)
  Sender: FDA-Public Use
  Company Number: US-TEVA-2023-US-2857416

PATIENT
  Age: 27 Year
  Sex: Male

DRUGS (6)
  1. CISPLATIN [Suspect]
     Active Substance: CISPLATIN
     Indication: Mixed hepatocellular cholangiocarcinoma
     Dosage: 20 MG/M2 ON DAY 1 AND DAY 8 OF 21-DAY CYCLE
     Route: 042
  2. GEMCITABINE [Suspect]
     Active Substance: GEMCITABINE
     Indication: Mixed hepatocellular cholangiocarcinoma
     Dosage: 800 MG/M2 ON DAY 1 AND DAY 8 OF 21-DAY CYCLE
     Route: 042
  3. LENVATINIB [Suspect]
     Active Substance: LENVATINIB
     Indication: Mixed hepatocellular cholangiocarcinoma
     Dosage: 8 MILLIGRAM DAILY; ONCE DAILY
     Route: 048
  4. IODINE [Concomitant]
     Active Substance: IODINE
     Indication: Scan with contrast
     Route: 042
  5. Sodium valproate ER [Concomitant]
     Indication: Seizure
     Dosage: 1000 MILLIGRAM DAILY; ONCE DAILY
     Route: 065
  6. LEVETIRACETAM [Concomitant]
     Active Substance: LEVETIRACETAM
     Indication: Seizure
     Dosage: 1000 MILLIGRAM DAILY; 500MG TWICE DAILY
     Route: 065

REACTIONS (2)
  - Myeloid leukaemia [Unknown]
  - Drug ineffective [Fatal]
